FAERS Safety Report 5758715-9 (Version None)
Quarter: 2008Q2

REPORT INFORMATION
  Report Type: 
  Country: None (occurrence: None)
  Receive Date: 20080603
  Receipt Date: 20080603
  Transmission Date: 20081010
  Serious: Yes (Hospitalization)
  Sender: FDA-Public Use
  Company Number: None

PATIENT
  Age: 61 Year
  Sex: Male

DRUGS (2)
  1. DOCETAXEL [Suspect]
     Indication: PROSTATE CANCER
     Dosage: 165 MG OTHER IV
     Route: 042
     Dates: start: 20070524, end: 20070524
  2. DOCETAXEL [Suspect]
     Dosage: 165 MG OTHER IV
     Route: 042
     Dates: start: 20070625, end: 20070625

REACTIONS (3)
  - DISSEMINATED INTRAVASCULAR COAGULATION [None]
  - PANCYTOPENIA [None]
  - PNEUMONIA [None]
